FAERS Safety Report 5051193-7 (Version None)
Quarter: 2006Q3

REPORT INFORMATION
  Report Type: 
  Country: None (occurrence: None)
  Receive Date: 20060714
  Receipt Date: 20060707
  Transmission Date: 20061208
  Serious: Yes (Other)
  Sender: FDA-Public Use
  Company Number: PE-ROCHE-454746

PATIENT
  Age: 78 Year
  Sex: Female

DRUGS (4)
  1. BONIVA [Suspect]
     Indication: OSTEOPOROSIS
     Route: 048
     Dates: start: 20060706
  2. CALCIUM GLUCONATE [Suspect]
     Indication: OSTEOPOROSIS
     Dosage: DOSAGE REGIMEN REPORTED AS DAILY
     Route: 048
     Dates: start: 20060706, end: 20060707
  3. ASPIRIN [Concomitant]
  4. IRRIGOR [Concomitant]
     Dosage: DAILY

REACTIONS (3)
  - BURNING SENSATION [None]
  - ORAL MUCOSAL PETECHIAE [None]
  - PHARYNGOLARYNGEAL PAIN [None]
